FAERS Safety Report 25118598 (Version 1)
Quarter: 2025Q1

REPORT INFORMATION
  Report Type: Spontaneous
  Country: US (occurrence: US)
  Receive Date: 20250325
  Receipt Date: 20250325
  Transmission Date: 20250408
  Serious: Yes (Death, Life-Threatening, Hospitalization)
  Sender: MYLAN
  Company Number: US-MYLANLABS-2025M1025588

PATIENT
  Age: 20 Year
  Sex: Female

DRUGS (40)
  1. AMLODIPINE [Suspect]
     Active Substance: AMLODIPINE BESYLATE
     Indication: Product used for unknown indication
  2. AMLODIPINE [Suspect]
     Active Substance: AMLODIPINE BESYLATE
     Route: 048
  3. AMLODIPINE [Suspect]
     Active Substance: AMLODIPINE BESYLATE
     Route: 048
  4. AMLODIPINE [Suspect]
     Active Substance: AMLODIPINE BESYLATE
  5. NOREPINEPHRINE [Suspect]
     Active Substance: NOREPINEPHRINE
     Indication: Cardiac failure high output
  6. NOREPINEPHRINE [Suspect]
     Active Substance: NOREPINEPHRINE
     Route: 065
  7. NOREPINEPHRINE [Suspect]
     Active Substance: NOREPINEPHRINE
     Route: 065
  8. NOREPINEPHRINE [Suspect]
     Active Substance: NOREPINEPHRINE
  9. EPINEPHRINE [Suspect]
     Active Substance: EPINEPHRINE
     Indication: Cardiac failure high output
  10. EPINEPHRINE [Suspect]
     Active Substance: EPINEPHRINE
     Route: 065
  11. EPINEPHRINE [Suspect]
     Active Substance: EPINEPHRINE
     Route: 065
  12. EPINEPHRINE [Suspect]
     Active Substance: EPINEPHRINE
  13. VASOPRESSIN [Suspect]
     Active Substance: VASOPRESSIN
     Indication: Cardiac failure high output
  14. VASOPRESSIN [Suspect]
     Active Substance: VASOPRESSIN
     Route: 065
  15. VASOPRESSIN [Suspect]
     Active Substance: VASOPRESSIN
     Route: 065
  16. VASOPRESSIN [Suspect]
     Active Substance: VASOPRESSIN
  17. PHENYLEPHRINE [Suspect]
     Active Substance: PHENYLEPHRINE
     Indication: Cardiac failure high output
  18. PHENYLEPHRINE [Suspect]
     Active Substance: PHENYLEPHRINE
     Route: 065
  19. PHENYLEPHRINE [Suspect]
     Active Substance: PHENYLEPHRINE
     Route: 065
  20. PHENYLEPHRINE [Suspect]
     Active Substance: PHENYLEPHRINE
  21. METHYLENE BLUE [Suspect]
     Active Substance: METHYLENE BLUE
     Indication: Vasoplegia syndrome
  22. METHYLENE BLUE [Suspect]
     Active Substance: METHYLENE BLUE
     Route: 065
  23. METHYLENE BLUE [Suspect]
     Active Substance: METHYLENE BLUE
     Route: 065
  24. METHYLENE BLUE [Suspect]
     Active Substance: METHYLENE BLUE
  25. HYDROXOCOBALAMIN [Suspect]
     Active Substance: HYDROXOCOBALAMIN
     Indication: Vasoplegia syndrome
  26. HYDROXOCOBALAMIN [Suspect]
     Active Substance: HYDROXOCOBALAMIN
     Route: 065
  27. HYDROXOCOBALAMIN [Suspect]
     Active Substance: HYDROXOCOBALAMIN
     Route: 065
  28. HYDROXOCOBALAMIN [Suspect]
     Active Substance: HYDROXOCOBALAMIN
  29. GLUCAGON [Concomitant]
     Active Substance: GLUCAGON
     Indication: Product used for unknown indication
  30. GLUCAGON [Concomitant]
     Active Substance: GLUCAGON
     Route: 065
  31. GLUCAGON [Concomitant]
     Active Substance: GLUCAGON
     Route: 065
  32. GLUCAGON [Concomitant]
     Active Substance: GLUCAGON
  33. CALCIUM [Concomitant]
     Active Substance: CALCIUM
     Indication: Product used for unknown indication
  34. CALCIUM [Concomitant]
     Active Substance: CALCIUM
     Route: 065
  35. CALCIUM [Concomitant]
     Active Substance: CALCIUM
     Route: 065
  36. CALCIUM [Concomitant]
     Active Substance: CALCIUM
  37. INSULIN NOS [Concomitant]
     Active Substance: INSULIN NOS
     Indication: Product used for unknown indication
  38. INSULIN NOS [Concomitant]
     Active Substance: INSULIN NOS
     Route: 065
  39. INSULIN NOS [Concomitant]
     Active Substance: INSULIN NOS
     Route: 065
  40. INSULIN NOS [Concomitant]
     Active Substance: INSULIN NOS

REACTIONS (13)
  - Toxicity to various agents [Fatal]
  - Overdose [Fatal]
  - Cardiac arrest [Fatal]
  - Cardiac failure high output [Fatal]
  - Drug ineffective [Fatal]
  - Vasoplegia syndrome [Unknown]
  - Renal failure [Unknown]
  - Multiple organ dysfunction syndrome [Unknown]
  - Somnolence [Unknown]
  - Hypotension [Unknown]
  - Pulmonary oedema [Unknown]
  - Generalised oedema [Unknown]
  - Hypoxia [Unknown]
